FAERS Safety Report 6048617-5 (Version None)
Quarter: 2009Q1

REPORT INFORMATION
  Report Type: 
  Country: None (occurrence: None)
  Receive Date: 20090123
  Receipt Date: 20090119
  Transmission Date: 20090719
  Serious: Yes (Hospitalization)
  Sender: FDA-Public Use
  Company Number: FR-BRISTOL-MYERS SQUIBB COMPANY-14475958

PATIENT
  Age: 32 Year
  Sex: Female

DRUGS (2)
  1. COUMADIN [Suspect]
     Indication: PROPHYLAXIS
     Dates: start: 20081021, end: 20081117
  2. TARDYFERON [Concomitant]

REACTIONS (1)
  - NEUTROPENIA [None]
